FAERS Safety Report 22008926 (Version 1)
Quarter: 2023Q1

REPORT INFORMATION
  Report Type: Report from Study
  Country: US (occurrence: None)
  Receive Date: 20230220
  Receipt Date: 20230220
  Transmission Date: 20230418
  Serious: Yes (Death, Other)
  Sender: FDA-Public Use
  Company Number: US-MAIA Pharmaceuticals, Inc.-MAI202302-000011

PATIENT
  Age: 13 Year
  Sex: Female

DRUGS (4)
  1. LEVOTHYROXINE SODIUM [Suspect]
     Active Substance: LEVOTHYROXINE SODIUM
     Indication: Product used for unknown indication
     Dosage: UNKNOWN
     Route: 048
  2. BENZONATATE [Suspect]
     Active Substance: BENZONATATE
     Indication: Product used for unknown indication
     Dosage: UNKNOWN
     Route: 048
  3. NITROFURANTOIN [Suspect]
     Active Substance: NITROFURANTOIN
     Indication: Product used for unknown indication
     Dosage: UNKNOWN
     Route: 048
  4. CEFDINIR [Suspect]
     Active Substance: CEFDINIR
     Indication: Product used for unknown indication
     Dosage: UNKNOWN
     Route: 048

REACTIONS (1)
  - Completed suicide [Fatal]
